FAERS Safety Report 23310012 (Version 1)
Quarter: 2023Q4

REPORT INFORMATION
  Report Type: Spontaneous
  Country: US (occurrence: None)
  Receive Date: 20231218
  Receipt Date: 20231218
  Transmission Date: 20240110
  Serious: Yes (Other)
  Sender: FDA-Public Use
  Company Number: None

PATIENT
  Age: 52 Year
  Sex: Male
  Weight: 70 kg

DRUGS (1)
  1. INFLECTRA [Suspect]
     Active Substance: INFLIXIMAB-DYYB
     Indication: Crohn^s disease
     Dosage: OTHER FREQUENCY : Q4WEEKS;?
     Route: 042
     Dates: start: 20230313

REACTIONS (1)
  - Demyelinating polyneuropathy [None]

NARRATIVE: CASE EVENT DATE: 20231101
